FAERS Safety Report 11189538 (Version 1)
Quarter: 2015Q2

REPORT INFORMATION
  Report Type: Report from Study
  Country: US (occurrence: US)
  Receive Date: 20150615
  Receipt Date: 20150615
  Transmission Date: 20150821
  Serious: Yes (Other)
  Sender: FDA-Public Use
  Company Number: US-ABBVIE-15K-163-1386553-00

PATIENT
  Sex: Male

DRUGS (5)
  1. HUMIRA [Suspect]
     Active Substance: ADALIMUMAB
     Indication: PSORIATIC ARTHROPATHY
     Route: 065
     Dates: start: 201211, end: 201211
  2. HUMIRA [Suspect]
     Active Substance: ADALIMUMAB
     Indication: PSORIASIS
     Dosage: ONE WEEK AFTER 80 MG DOSE
     Route: 065
     Dates: start: 2012, end: 2014
  3. HUMIRA [Suspect]
     Active Substance: ADALIMUMAB
     Route: 065
     Dates: start: 201502, end: 201502
  4. PROPRANOLOL [Concomitant]
     Active Substance: PROPRANOLOL\PROPRANOLOL HYDROCHLORIDE
     Indication: HYPERTENSION
  5. HUMIRA [Suspect]
     Active Substance: ADALIMUMAB
     Dosage: ONE WEEK AFTER 80 MG DOSE
     Route: 065
     Dates: start: 2015

REACTIONS (3)
  - Rotator cuff syndrome [Recovered/Resolved]
  - Device issue [Unknown]
  - Drug effect incomplete [Not Recovered/Not Resolved]

NARRATIVE: CASE EVENT DATE: 2014
